FAERS Safety Report 9802773 (Version 1)
Quarter: 2014Q1

REPORT INFORMATION
  Report Type: Report from Study
  Country: US (occurrence: US)
  Receive Date: 20140108
  Receipt Date: 20140108
  Transmission Date: 20141002
  Serious: Yes (Other)
  Sender: FDA-Public Use
  Company Number: US-ROCHE-1329132

PATIENT
  Sex: 0

DRUGS (2)
  1. BEVACIZUMAB [Suspect]
     Indication: CHOLANGIOCARCINOMA
     Dosage: ON DAY 1 AND DAY 15
     Route: 042
  2. ERLOTINIB [Suspect]
     Indication: CHOLANGIOCARCINOMA
     Dosage: ON DAY 1 THROUGH DAY 28
     Route: 048

REACTIONS (6)
  - Exfoliative rash [Unknown]
  - Decreased appetite [Unknown]
  - Hyponatraemia [Unknown]
  - Diarrhoea [Unknown]
  - Nail disorder [Unknown]
  - Prothrombin time prolonged [Unknown]
